FAERS Safety Report 18607366 (Version 1)
Quarter: 2020Q4

REPORT INFORMATION
  Report Type: Spontaneous
  Country: US (occurrence: US)
  Receive Date: 20201211
  Receipt Date: 20201211
  Transmission Date: 20210114
  Serious: No
  Sender: FDA-Public Use
  Company Number: US-PFIZER INC-2019425084

PATIENT
  Age: 83 Year
  Sex: Female
  Weight: 54.42 kg

DRUGS (1)
  1. LYRICA CR [Suspect]
     Active Substance: PREGABALIN
     Indication: DIABETIC NEUROPATHY
     Dosage: 25 MG, 1X/DAY
     Route: 048

REACTIONS (2)
  - Malaise [Unknown]
  - Product prescribing error [Unknown]
